FAERS Safety Report 9276932 (Version 2)
Quarter: 2013Q3

REPORT INFORMATION
  Report Type: Spontaneous
  Country: DK (occurrence: DK)
  Receive Date: 20130507
  Receipt Date: 20130916
  Transmission Date: 20140515
  Serious: Yes (Other)
  Sender: FDA-Public Use
  Company Number: DK-NICOBRDEVP-2013-07656

PATIENT
  Age: 54 Year
  Sex: Female
  Weight: 67 kg

DRUGS (4)
  1. SIMVASTATIN (UNKNOWN) [Suspect]
     Indication: HYPERCHOLESTEROLAEMIA
     Dosage: 40 MG, DAILY
     Route: 048
     Dates: start: 20100520, end: 20130115
  2. LEVEMIR [Concomitant]
     Indication: PRODUCT USED FOR UNKNOWN INDICATION
     Dosage: UNK
     Route: 065
  3. RAMIPRIL [Concomitant]
     Indication: PRODUCT USED FOR UNKNOWN INDICATION
     Dosage: UNK
     Route: 065
     Dates: start: 2001
  4. ELTROXIN [Concomitant]
     Indication: MYXOEDEMA
     Dosage: UNK
     Route: 048
     Dates: start: 200311

REACTIONS (27)
  - Pain in extremity [Recovered/Resolved]
  - Epistaxis [Recovered/Resolved]
  - Cough [Recovered/Resolved]
  - Abdominal discomfort [Recovered/Resolved]
  - Back pain [Recovered/Resolved]
  - Pruritus [Recovered/Resolved]
  - Hearing impaired [Recovered/Resolved]
  - Diabetes mellitus [Recovered/Resolved]
  - Mental disorder [Recovered/Resolved]
  - Memory impairment [Recovered/Resolved]
  - Memory impairment [Recovered/Resolved]
  - Depression [Recovered/Resolved]
  - Aggression [Recovered/Resolved]
  - Blood thyroid stimulating hormone increased [Recovered/Resolved]
  - High density lipoprotein decreased [Recovered/Resolved]
  - Dyspnoea [Recovered/Resolved]
  - Fatigue [Recovered/Resolved]
  - Restlessness [Recovered/Resolved]
  - Arthritis [Recovered/Resolved]
  - Myalgia [Recovered/Resolved]
  - Insomnia [Recovered/Resolved]
  - Tinnitus [Recovered/Resolved]
  - Nausea [Recovered/Resolved]
  - Pruritus [Recovered/Resolved]
  - Muscle disorder [Recovered/Resolved]
  - Crying [Recovered/Resolved]
  - Muscular weakness [Recovered/Resolved]
